FAERS Safety Report 24888600 (Version 1)
Quarter: 2025Q1

REPORT INFORMATION
  Report Type: Spontaneous
  Country: US (occurrence: None)
  Receive Date: 20250124
  Receipt Date: 20250124
  Transmission Date: 20250409
  Serious: Yes (Death)
  Sender: FDA-CTU
  Company Number: None

PATIENT
  Age: 61 Year
  Sex: Male

DRUGS (12)
  1. TACROLIMUS [Suspect]
     Active Substance: TACROLIMUS
     Indication: Renal transplant
     Dosage: FREQUENCY : TWICE A DAY;?
     Route: 048
     Dates: start: 20220531, end: 20250102
  2. MYCOPHENOLIC ACID [Suspect]
     Active Substance: MYCOPHENOLIC ACID
     Indication: Renal transplant
     Dosage: FREQUENCY : TWICE A DAY;?
     Route: 048
     Dates: start: 20220531, end: 20250102
  3. PREDNISONE [Concomitant]
     Active Substance: PREDNISONE
  4. Rosuvastatin 10mg tab [Concomitant]
  5. Clopidogrel 75mg tab [Concomitant]
  6. Breyna 80/4.5mcg oral inh [Concomitant]
  7. Tramadol 50 mg tab [Concomitant]
  8. Ezetimibe 10 mg tab [Concomitant]
  9. Praluent 150 mg inj [Concomitant]
  10. Jardiance 10 mg tab [Concomitant]
  11. Aspirin 81 mg tab [Concomitant]
  12. LIDOCAINE [Concomitant]
     Active Substance: LIDOCAINE

REACTIONS (1)
  - Death [None]

NARRATIVE: CASE EVENT DATE: 20250102
